FAERS Safety Report 8688245 (Version 2)
Quarter: 2012Q4

REPORT INFORMATION
  Report Type: 
  Country: DE (occurrence: DE)
  Receive Date: 20120727
  Receipt Date: 20120906
  Transmission Date: 20130627
  Serious: Yes (Death, Other)
  Sender: FDA-Public Use
  Company Number: DE-ROCHE-1092848

PATIENT
  Sex: Female
  Weight: 78 kg

DRUGS (3)
  1. AVASTIN [Suspect]
     Indication: BREAST CANCER METASTATIC
     Route: 042
     Dates: start: 20120706
  2. XELODA [Suspect]
     Indication: BREAST CANCER METASTATIC
     Route: 048
     Dates: start: 20120705
  3. VALORON N [Concomitant]
     Indication: ABDOMINAL PAIN UPPER
     Dosage: 50/4 mg
     Route: 048
     Dates: start: 201206

REACTIONS (2)
  - Thrombocytopenia [Fatal]
  - Leukopenia [Unknown]
